FAERS Safety Report 7815418-4 (Version None)
Quarter: 2011Q4

REPORT INFORMATION
  Report Type: 
  Country: None (occurrence: None)
  Receive Date: 20111014
  Receipt Date: 20111005
  Transmission Date: 20120403
  Serious: Yes (Other)
  Sender: FDA-Public Use
  Company Number: PHHY2011ZA89074

PATIENT
  Sex: Female

DRUGS (7)
  1. COMBIVENT [Concomitant]
     Indication: ASTHMA
     Dosage: UNK
  2. SERETIDE ACCUHALER [Concomitant]
     Indication: ASTHMA
  3. SANDOZ THEOPHYLLINE [Concomitant]
     Indication: CHEST DISCOMFORT
     Dosage: UNK
  4. ASPIRIN [Concomitant]
  5. OMEPRAZOLE [Concomitant]
     Indication: PEPTIC ULCER
  6. ESTRADERM [Suspect]
     Indication: HORMONE REPLACEMENT THERAPY
     Route: 062
  7. PULMICORT [Concomitant]
     Indication: ASTHMA
     Dosage: UNK

REACTIONS (4)
  - BREAST CALCIFICATIONS [None]
  - MALAISE [None]
  - GASTRIC ULCER [None]
  - BLOOD PRESSURE DIASTOLIC INCREASED [None]
